FAERS Safety Report 26112162 (Version 1)
Quarter: 2025Q4

REPORT INFORMATION
  Report Type: Spontaneous
  Country: JP (occurrence: JP)
  Receive Date: 20251202
  Receipt Date: 20251202
  Transmission Date: 20260117
  Serious: Yes (Hospitalization, Other)
  Sender: ROCHE
  Company Number: JP-CHUGAI-2025038860

PATIENT
  Age: 75 Year
  Sex: Female

DRUGS (1)
  1. TECENTRIQ [Suspect]
     Active Substance: ATEZOLIZUMAB
     Indication: Lung adenocarcinoma
     Dosage: UNK
     Route: 042

REACTIONS (3)
  - Altered state of consciousness [Unknown]
  - Diabetic ketoacidosis [Unknown]
  - Fulminant type 1 diabetes mellitus [Unknown]
